FAERS Safety Report 15361015 (Version 1)
Quarter: 2018Q3

REPORT INFORMATION
  Report Type: Spontaneous
  Country: FR (occurrence: FR)
  Receive Date: 20180907
  Receipt Date: 20180907
  Transmission Date: 20181010
  Serious: Yes (Hospitalization, Other)
  Sender: FDA-Public Use
  Company Number: FR-SA-2018SA185233

PATIENT
  Age: 75 Year
  Sex: Male
  Weight: 52 kg

DRUGS (5)
  1. GARDENAL [PHENOBARBITAL] [Concomitant]
     Dosage: UNK, UNK
     Route: 065
  2. PLAVIX [Suspect]
     Active Substance: CLOPIDOGREL BISULFATE
     Indication: ACUTE CORONARY SYNDROME
     Dosage: UNK, UNK
     Route: 048
     Dates: start: 20180622, end: 20180720
  3. LANSOPRAZOL [Concomitant]
     Active Substance: LANSOPRAZOLE
     Dosage: UNK UNK, QD,IN THE EVENING
     Route: 048
  4. DIGOXIN. [Concomitant]
     Active Substance: DIGOXIN
     Dosage: UNK, 1CP
     Route: 065
  5. KARDEGIC [Concomitant]
     Active Substance: ASPIRIN DL-LYSINE
     Dosage: UNK UNK, QD, FOR LUNCH
     Route: 065

REACTIONS (5)
  - Chromaturia [Not Recovered/Not Resolved]
  - Haematuria [Recovering/Resolving]
  - Diarrhoea [Recovering/Resolving]
  - Dyspnoea [Not Recovered/Not Resolved]
  - Balance disorder [Recovering/Resolving]
